FAERS Safety Report 15656653 (Version 4)
Quarter: 2019Q4

REPORT INFORMATION
  Report Type: Report from Study
  Country: US (occurrence: US)
  Receive Date: 20181126
  Receipt Date: 20191108
  Transmission Date: 20200122
  Serious: Yes (Hospitalization, Other)
  Sender: FDA-Public Use
  Company Number: US-TAKEDA-2018TUS033460

PATIENT
  Sex: Male

DRUGS (4)
  1. GABAPENTIN. [Concomitant]
     Active Substance: GABAPENTIN
     Dosage: UNK
     Route: 065
  2. PONATINIB [Suspect]
     Active Substance: PONATINIB
     Dosage: 15 MILLIGRAM, QD
     Route: 048
     Dates: start: 201910
  3. PONATINIB [Suspect]
     Active Substance: PONATINIB
     Indication: CHRONIC MYELOID LEUKAEMIA
     Dosage: 45 MILLIGRAM, QD
     Route: 048
     Dates: start: 20181108
  4. BACLOFEN. [Concomitant]
     Active Substance: BACLOFEN
     Dosage: UNK
     Route: 065

REACTIONS (10)
  - Peripheral swelling [Unknown]
  - Rash vesicular [Recovering/Resolving]
  - Erythema [Unknown]
  - Pyrexia [Recovered/Resolved]
  - Head and neck cancer [Unknown]
  - Platelet count decreased [Unknown]
  - Alopecia [Unknown]
  - Pleural effusion [Unknown]
  - Red blood cell count decreased [Unknown]
  - White blood cell count decreased [Unknown]
